FAERS Safety Report 5657209-9 (Version None)
Quarter: 2008Q1

REPORT INFORMATION
  Report Type: 
  Country: None (occurrence: None)
  Receive Date: 20080307
  Receipt Date: 20080307
  Transmission Date: 20080703
  Serious: Yes (Other)
  Sender: FDA-Public Use
  Company Number: None

PATIENT
  Age: 25 Year
  Sex: Male
  Weight: 69.7 kg

DRUGS (1)
  1. STRIANT [Suspect]
     Indication: ANDROGEN DEFICIENCY
     Dosage: 30 MG EVERY 12 HOURS BUCCAL
     Route: 002
     Dates: start: 20060401, end: 20080306

REACTIONS (3)
  - APPLICATION SITE REACTION [None]
  - GINGIVAL ATROPHY [None]
  - PHARMACEUTICAL PRODUCT COMPLAINT [None]
